FAERS Safety Report 13232049 (Version 1)
Quarter: 2017Q1

REPORT INFORMATION
  Report Type: Spontaneous
  Country: US (occurrence: US)
  Receive Date: 20170214
  Receipt Date: 20170214
  Transmission Date: 20170428
  Serious: Yes (Other)
  Sender: FDA-Public Use
  Company Number: US-CELGENEUS-USA-2017021522

PATIENT
  Age: 65 Year
  Sex: Male

DRUGS (5)
  1. REVLIMID [Suspect]
     Active Substance: LENALIDOMIDE
     Dosage: 15 MILLIGRAM
     Route: 048
     Dates: start: 201304
  2. DEXAMETHASONE. [Concomitant]
     Active Substance: DEXAMETHASONE
     Indication: PLASMA CELL MYELOMA
     Route: 065
  3. BIAXIN [Concomitant]
     Active Substance: CLARITHROMYCIN
     Indication: PLASMA CELL MYELOMA
     Route: 065
  4. REVLIMID [Suspect]
     Active Substance: LENALIDOMIDE
     Indication: PLASMA CELL MYELOMA
     Dosage: 15 MILLIGRAM
     Route: 048
     Dates: start: 201107
  5. BABY ASA [Concomitant]
     Active Substance: ASPIRIN
     Indication: PLASMA CELL MYELOMA
     Route: 065

REACTIONS (1)
  - Eye haemorrhage [Recovering/Resolving]

NARRATIVE: CASE EVENT DATE: 20170123
